FAERS Safety Report 5173268-4 (Version None)
Quarter: 2006Q4

REPORT INFORMATION
  Report Type: 
  Country: None (occurrence: None)
  Receive Date: 20061206
  Receipt Date: 20061120
  Transmission Date: 20070319
  Serious: Yes (Death)
  Sender: FDA-Public Use
  Company Number: 06-NIP00154

PATIENT
  Age: 67 Year
  Sex: Female
  Weight: 74.3 kg

DRUGS (1)
  1. NIPENT [Suspect]
     Indication: STEM CELL TRANSPLANT
     Dosage: 1.7143 MG/M2 (4 MG/M2,QD X 3), INTRAVENOUS
     Route: 042
     Dates: start: 20060717, end: 20060719

REACTIONS (5)
  - ASTHENIA [None]
  - FAILURE TO THRIVE [None]
  - GENERAL PHYSICAL HEALTH DETERIORATION [None]
  - NAUSEA [None]
  - VOMITING [None]
